FAERS Safety Report 10197284 (Version 1)
Quarter: 2014Q2

REPORT INFORMATION
  Report Type: Spontaneous
  Country: US (occurrence: None)
  Receive Date: 20140523
  Receipt Date: 20140523
  Transmission Date: 20141212
  Serious: Yes (Hospitalization)
  Sender: FDA-Public Use
  Company Number: None

PATIENT
  Age: 61 Year
  Sex: Male
  Weight: 98.5 kg

DRUGS (1)
  1. NAPROXEN [Suspect]
     Indication: PAIN
     Route: 048
     Dates: start: 20140502, end: 20140512

REACTIONS (3)
  - Gastrointestinal haemorrhage [None]
  - Erosive oesophagitis [None]
  - Gastric ulcer [None]
